FAERS Safety Report 5943336-5 (Version None)
Quarter: 2008Q4

REPORT INFORMATION
  Report Type: 
  Country: None (occurrence: None)
  Receive Date: 20081106
  Receipt Date: 20081022
  Transmission Date: 20090506
  Serious: Yes (Hospitalization, Other)
  Sender: FDA-Public Use
  Company Number: PHHY2008LT22956

PATIENT
  Sex: Female

DRUGS (5)
  1. LESCOL XL [Suspect]
     Indication: HYPERCHOLESTEROLAEMIA
     Dosage: 2 TABLETS/DAY
     Route: 048
  2. LESCOL XL [Suspect]
     Dosage: 1 TABLET/DAY
     Route: 048
  3. CELL CEPT [Concomitant]
     Dosage: 500 MG, UNK
  4. SANDIMUN [Concomitant]
     Dosage: UNK
  5. CALCITONIN-SALMON [Concomitant]
     Dosage: UNK

REACTIONS (6)
  - BLOOD CREATINE PHOSPHOKINASE INCREASED [None]
  - BLOOD CREATININE INCREASED [None]
  - MYOGLOBIN BLOOD INCREASED [None]
  - OEDEMA PERIPHERAL [None]
  - RHABDOMYOLYSIS [None]
  - TRANSPLANT EVALUATION [None]
